FAERS Safety Report 6574155-7 (Version None)
Quarter: 2010Q1

REPORT INFORMATION
  Report Type: 
  Country: None (occurrence: None)
  Receive Date: 20100208
  Receipt Date: 20100126
  Transmission Date: 20100710
  Serious: Yes (Death, Hospitalization, Other)
  Sender: FDA-Public Use
  Company Number: US-ROCHE-679711

PATIENT
  Sex: Male
  Weight: 63 kg

DRUGS (10)
  1. MYCOPHENOLATE MOFETIL [Suspect]
     Route: 048
     Dates: start: 20071211, end: 20081201
  2. MYCOPHENOLATE MOFETIL [Suspect]
     Route: 048
     Dates: start: 20090701, end: 20100114
  3. PROGRAF [Suspect]
     Indication: LIVER TRANSPLANT
     Dosage: FREQUENCY: UID/QD
     Route: 065
     Dates: start: 20071211, end: 20081201
  4. PROGRAF [Suspect]
     Route: 065
     Dates: start: 20090701, end: 20100114
  5. RAPAMUNE [Suspect]
     Indication: LIVER TRANSPLANT
     Route: 065
     Dates: start: 20081201, end: 20090701
  6. PREDNISONE TAB [Suspect]
     Indication: LIVER TRANSPLANT
     Route: 065
     Dates: start: 20081201, end: 20090701
  7. SEROQUEL [Concomitant]
     Dates: start: 20071201, end: 20100114
  8. TRAZODONE [Concomitant]
     Dates: start: 20091201, end: 20100114
  9. OXYCODONE HCL [Concomitant]
     Dates: start: 20080101, end: 20100114
  10. SINEMET [Concomitant]
     Dates: start: 20081201, end: 20100114

REACTIONS (9)
  - ASPHYXIA [None]
  - BLOOD CREATININE INCREASED [None]
  - DEATH [None]
  - FEELING HOT [None]
  - INFECTION [None]
  - PNEUMONIA [None]
  - RESPIRATORY ARREST [None]
  - SPINAL FUSION SURGERY [None]
  - UNEVALUABLE EVENT [None]
